FAERS Safety Report 7319786-1 (Version None)
Quarter: 2011Q1

REPORT INFORMATION
  Report Type: 
  Country: None (occurrence: None)
  Receive Date: 20110228
  Receipt Date: 20100918
  Transmission Date: 20110831
  Serious: No
  Sender: FDA-Public Use
  Company Number: A0883255A

PATIENT
  Sex: Female

DRUGS (1)
  1. LAMICTAL [Suspect]
     Route: 065
     Dates: start: 20100827

REACTIONS (3)
  - PRURITUS [None]
  - RASH [None]
  - RASH GENERALISED [None]
